FAERS Safety Report 10250160 (Version 1)
Quarter: 2014Q2

REPORT INFORMATION
  Report Type: Spontaneous
  Country: US (occurrence: US)
  Receive Date: 20140620
  Receipt Date: 20140620
  Transmission Date: 20141212
  Serious: No
  Sender: FDA-Public Use
  Company Number: US-BRISTOL-MYERS SQUIBB COMPANY-20713053

PATIENT
  Age: 85 Year
  Sex: Male
  Weight: 72.56 kg

DRUGS (6)
  1. ELIQUIS [Suspect]
     Indication: CEREBROVASCULAR ACCIDENT PROPHYLAXIS
     Route: 048
     Dates: start: 201401
  2. RAMIPRIL [Concomitant]
  3. ALBUTEROL [Concomitant]
  4. SPIRONOLACTONE [Concomitant]
  5. CARVEDILOL [Concomitant]
  6. ATORVASTATIN [Concomitant]

REACTIONS (4)
  - Tinnitus [Not Recovered/Not Resolved]
  - Ear discomfort [Not Recovered/Not Resolved]
  - Ear pruritus [Not Recovered/Not Resolved]
  - Sluggishness [Not Recovered/Not Resolved]
